FAERS Safety Report 4818254-6 (Version None)
Quarter: 2005Q3

REPORT INFORMATION
  Report Type: 
  Country: None (occurrence: None)
  Receive Date: 20050929
  Receipt Date: 20050621
  Transmission Date: 20060218
  Serious: No
  Sender: FDA-Public Use
  Company Number: 05P-163-0303705-00

PATIENT
  Age: 43 Year
  Sex: Female

DRUGS (7)
  1. HUMIRA [Suspect]
     Indication: RHEUMATOID ARTHRITIS
     Dosage: 40 MG, 1 IN 2 WK, SUBCUTANEOUS
     Route: 058
     Dates: start: 20050506
  2. METOPROLOL TARTRATE [Concomitant]
  3. HYDROCHLOROTHIAZIDE [Concomitant]
  4. FLUOXETINE HYDROCHLORIDE [Concomitant]
  5. CALCIUM CARBONATE [Concomitant]
  6. FOLIC ACID [Concomitant]
  7. LEFLUNOMIDE [Concomitant]

REACTIONS (2)
  - DYSPNOEA [None]
  - URTICARIA [None]
